FAERS Safety Report 18058706 (Version 2)
Quarter: 2020Q3

REPORT INFORMATION
  Report Type: Spontaneous
  Country: US (occurrence: US)
  Receive Date: 20200723
  Receipt Date: 20200729
  Transmission Date: 20201103
  Serious: No
  Sender: FDA-Public Use
  Company Number: US-BIOGEN-2020BI00899374

PATIENT
  Sex: Female

DRUGS (1)
  1. TECFIDERA [Suspect]
     Active Substance: DIMETHYL FUMARATE
     Indication: MULTIPLE SCLEROSIS
     Route: 065
     Dates: start: 20190830

REACTIONS (6)
  - Weight increased [Unknown]
  - Hot flush [Unknown]
  - Alopecia [Unknown]
  - Gastric disorder [Unknown]
  - Lung hyperinflation [Unknown]
  - Hypoaesthesia [Unknown]
